FAERS Safety Report 18642386 (Version 1)
Quarter: 2020Q4

REPORT INFORMATION
  Report Type: Spontaneous
  Country: PL (occurrence: PL)
  Receive Date: 20201221
  Receipt Date: 20201221
  Transmission Date: 20210114
  Serious: Yes (Other)
  Sender: FDA-Public Use
  Company Number: PL-MYLANLABS-2020M1101948

PATIENT
  Age: 26 Year
  Sex: Female

DRUGS (5)
  1. LAMOTRIGINE. [Suspect]
     Active Substance: LAMOTRIGINE
     Indication: EPILEPSY
     Dosage: 300 MILLIGRAM, QD
     Route: 065
  2. VALPROIC ACID. [Suspect]
     Active Substance: VALPROIC ACID
     Indication: EPILEPSY
     Dosage: 1000 MILLIGRAM, QD
     Route: 065
  3. TIAGABINE [Suspect]
     Active Substance: TIAGABINE
     Indication: EPILEPSY
     Dosage: GRADUALLY REDUCE THE DOSE
     Route: 065
  4. PHENYTOIN. [Suspect]
     Active Substance: PHENYTOIN
     Indication: EPILEPSY
     Dosage: 200 MILLIGRAM, QD
     Route: 065
  5. LACOSAMIDE. [Suspect]
     Active Substance: LACOSAMIDE
     Indication: EPILEPSY
     Dosage: 200 MILLIGRAM, QD
     Route: 065

REACTIONS (4)
  - Epilepsy [Recovered/Resolved]
  - Drug ineffective [Unknown]
  - Attention deficit hyperactivity disorder [Unknown]
  - Partial seizures [Unknown]
